FAERS Safety Report 5861484-5 (Version None)
Quarter: 2008Q3

REPORT INFORMATION
  Report Type: 
  Country: None (occurrence: None)
  Receive Date: 20080827
  Receipt Date: 20080519
  Transmission Date: 20090109
  Serious: No
  Sender: FDA-Public Use
  Company Number: US-ABBOTT-08P-163-0452384-00

PATIENT
  Sex: Female
  Weight: 113.05 kg

DRUGS (14)
  1. NIASPAN [Suspect]
     Indication: BLOOD CHOLESTEROL ABNORMAL
     Route: 048
     Dates: start: 20080512, end: 20080521
  2. FUROSEMIDE [Concomitant]
     Indication: FLUID RETENTION
     Route: 048
     Dates: start: 20040101
  3. PREDNISONE TAB [Concomitant]
     Indication: POLYMYOSITIS
     Route: 048
     Dates: start: 20040101
  4. CLOPIDOGREL [Concomitant]
     Indication: BLOOD CHOLESTEROL INCREASED
     Route: 048
     Dates: start: 20051101
  5. EZETIMIBE [Concomitant]
     Indication: CARDIAC DISORDER
     Route: 048
     Dates: start: 20051101
  6. METOPROLOL TARTRATE [Concomitant]
     Indication: BLOOD PRESSURE MANAGEMENT
     Route: 048
     Dates: start: 20051101
  7. ISOSORBIDE MONONITRATE [Concomitant]
     Indication: CARDIAC DISORDER
     Route: 048
     Dates: start: 20051101
  8. ROSIGLITAZONE MALEATE [Concomitant]
     Indication: DIABETES MELLITUS
     Route: 048
     Dates: start: 20030101
  9. GLIPIZIDE [Concomitant]
     Indication: DIABETES MELLITUS
     Route: 048
     Dates: start: 20030101
  10. ENALAPRIL MALEATE [Concomitant]
     Indication: CARDIAC DISORDER
     Dates: start: 20030101
  11. DULOXETINE HYDROCHLORIDE [Concomitant]
     Indication: DRUG USE FOR UNKNOWN INDICATION
     Dates: start: 20060101
  12. FOLIC ACID [Concomitant]
     Indication: VITAMIN SUPPLEMENTATION
     Dates: start: 20040101
  13. MELOXICAM [Concomitant]
     Indication: PAIN
     Route: 048
     Dates: start: 20040101
  14. METHOTREXATE [Concomitant]
     Indication: POLYMYOSITIS
     Dosage: 2.5MG EVERY MONDAY
     Route: 048
     Dates: start: 20040101

REACTIONS (5)
  - BURNING SENSATION [None]
  - ERYTHEMA [None]
  - JOINT SWELLING [None]
  - PRURITUS GENERALISED [None]
  - SWELLING FACE [None]
